FAERS Safety Report 26052082 (Version 1)
Quarter: 2025Q4

REPORT INFORMATION
  Report Type: Spontaneous
  Country: US (occurrence: US)
  Receive Date: 20251117
  Receipt Date: 20251117
  Transmission Date: 20260118
  Serious: Yes (Other)
  Sender: TEVA
  Company Number: US-TEVA-VS-3391827

PATIENT
  Age: 48 Year
  Sex: Female

DRUGS (10)
  1. ADDERALL [Suspect]
     Active Substance: AMPHETAMINE ASPARTATE\AMPHETAMINE SULFATE\DEXTROAMPHETAMINE SACCHARATE\DEXTROAMPHETAMINE SULFATE
     Indication: Narcolepsy
     Dosage: 10 MG DOSE (SHORT ACTING) UP TO 3 DOSES
     Route: 065
     Dates: start: 2025
  2. ADDERALL [Suspect]
     Active Substance: AMPHETAMINE ASPARTATE\AMPHETAMINE SULFATE\DEXTROAMPHETAMINE SACCHARATE\DEXTROAMPHETAMINE SULFATE
     Indication: Narcolepsy
     Dosage: ADDERALL IR AT 10 MG DOSE (SHORT ACTING) UP TO 3 DOSES, LAST ADMIN DATE: 2025-07-12
     Route: 065
  3. ARMODAFINIL [Suspect]
     Active Substance: ARMODAFINIL
     Indication: Narcolepsy
     Route: 065
     Dates: start: 2025
  4. ARMODAFINIL [Suspect]
     Active Substance: ARMODAFINIL
     Indication: Narcolepsy
     Dosage: LAST ADMIN DATE: 2025-07-12
     Route: 065
  5. CITALOPRAM [Suspect]
     Active Substance: CITALOPRAM
     Indication: Narcolepsy
     Route: 065
     Dates: start: 2025
  6. CITALOPRAM [Suspect]
     Active Substance: CITALOPRAM
     Indication: Narcolepsy
     Dosage: LAST ADMIN DATE: 2025-07-12
     Route: 065
  7. LUMRYZ [Suspect]
     Active Substance: SODIUM OXYBATE
     Indication: Narcolepsy
     Route: 065
     Dates: start: 20250915
  8. LUMRYZ [Suspect]
     Active Substance: SODIUM OXYBATE
     Indication: Narcolepsy
     Route: 065
     Dates: start: 20250712, end: 20250825
  9. DEXTROAMPHETAMINE SACCHARATE, AMPHETAMINE ASPARTATE, DEXTROAMPHETAMINE [Suspect]
     Active Substance: AMPHETAMINE ASPARTATE\AMPHETAMINE SULFATE\DEXTROAMPHETAMINE SACCHARATE\DEXTROAMPHETAMINE SULFATE
     Indication: Narcolepsy
     Route: 065
     Dates: start: 2025
  10. DEXTROAMPHETAMINE SACCHARATE, AMPHETAMINE ASPARTATE, DEXTROAMPHETAMINE [Suspect]
     Active Substance: AMPHETAMINE ASPARTATE\AMPHETAMINE SULFATE\DEXTROAMPHETAMINE SACCHARATE\DEXTROAMPHETAMINE SULFATE
     Indication: Narcolepsy
     Dosage: ADDERALL XR LAST ADMIN DATE: 2025-07-12
     Route: 065

REACTIONS (3)
  - Hallucination, auditory [Recovered/Resolved]
  - Drug withdrawal syndrome [Recovered/Resolved]
  - Sleep paralysis [Recovered/Resolved]

NARRATIVE: CASE EVENT DATE: 20250101
